FAERS Safety Report 23285797 (Version 2)
Quarter: 2024Q1

REPORT INFORMATION
  Report Type: Spontaneous
  Country: US (occurrence: None)
  Receive Date: 20231212
  Receipt Date: 20240131
  Transmission Date: 20240410
  Serious: Yes (Hospitalization, Other)
  Sender: FDA-Public Use
  Company Number: 2023A275288

PATIENT
  Age: 22962 Day

DRUGS (1)
  1. EVUSHELD [Suspect]
     Active Substance: CILGAVIMAB\TIXAGEVIMAB
     Route: 030
     Dates: start: 20220729

REACTIONS (3)
  - Spinal stroke [Unknown]
  - CSF red blood cell count positive [Unknown]
  - Arthritis [Unknown]
